FAERS Safety Report 5902582-7 (Version None)
Quarter: 2008Q3

REPORT INFORMATION
  Report Type: 
  Country: None (occurrence: None)
  Receive Date: 20080924
  Receipt Date: 20080909
  Transmission Date: 20090109
  Serious: Yes (Death)
  Sender: FDA-Public Use
  Company Number: 2008070825

PATIENT
  Age: 79 Year
  Sex: Male

DRUGS (15)
  1. DALTEPARIN SODIUM [Suspect]
     Indication: THROMBOSIS PROPHYLAXIS
     Dates: start: 20080402, end: 20080807
  2. CODEINE PHOSPHATE AND ACETAMINOPHEN [Concomitant]
  3. IBUPROFEN [Concomitant]
  4. GABAPENTIN [Concomitant]
  5. OMEPRAZOLE [Concomitant]
  6. TRAZODONE HCL [Concomitant]
  7. AMLODIPINE (AMLODIPINE) [Concomitant]
  8. DISOPYRAMIDE [Concomitant]
  9. RAMIPRIL [Concomitant]
  10. BENDROFLUAZIDE (BENDROFLUMETHIAZIDE) [Concomitant]
  11. ORAMORPH SR [Concomitant]
  12. DEXAMETHASONE TAB [Concomitant]
  13. DOMPERIDONE (DOMPERIDONE) [Concomitant]
  14. ASPIRIN [Concomitant]
  15. DISOPYRAMIDE [Concomitant]

REACTIONS (10)
  - BLOOD ALBUMIN DECREASED [None]
  - BLOOD ALKALINE PHOSPHATASE INCREASED [None]
  - BLOOD CREATININE INCREASED [None]
  - BLOOD PHOSPHORUS ABNORMAL [None]
  - BLOOD SODIUM DECREASED [None]
  - GAMMA-GLUTAMYLTRANSFERASE INCREASED [None]
  - HYPOTENSION [None]
  - PLATELET COUNT DECREASED [None]
  - PNEUMONIA [None]
  - SEPSIS [None]
